FAERS Safety Report 19788967 (Version 1)
Quarter: 2021Q3

REPORT INFORMATION
  Report Type: Spontaneous
  Country: AR (occurrence: AR)
  Receive Date: 20210904
  Receipt Date: 20210904
  Transmission Date: 20211014
  Serious: Yes (Death)
  Sender: FDA-Public Use
  Company Number: AR-AUROBINDO-AUR-APL-2021-037278

PATIENT
  Age: 53 Year
  Sex: Female

DRUGS (1)
  1. BELEODAQ [Suspect]
     Active Substance: BELINOSTAT
     Indication: NON-HODGKIN^S LYMPHOMA
     Dosage: 1000 MG/M2, DAILY
     Route: 065
     Dates: start: 20210615

REACTIONS (1)
  - Disease progression [Fatal]
